FAERS Safety Report 6829223-9 (Version None)
Quarter: 2010Q3

REPORT INFORMATION
  Report Type: 
  Country: None (occurrence: None)
  Receive Date: 20100709
  Receipt Date: 20070307
  Transmission Date: 20110219
  Serious: No
  Sender: FDA-Public Use
  Company Number: US-PFIZER INC-2007019928

PATIENT
  Sex: Female
  Weight: 50.8 kg

DRUGS (6)
  1. CHANTIX [Suspect]
     Indication: SMOKING CESSATION THERAPY
     Dates: start: 20070214
  2. HYDROCODONE BITARTRATE [Concomitant]
  3. LOVASTATIN [Concomitant]
  4. LEVOTHYROXINE SODIUM [Concomitant]
  5. LISINOPRIL [Concomitant]
  6. VALSARTAN [Concomitant]

REACTIONS (2)
  - DEPRESSION [None]
  - DRUG INEFFECTIVE [None]
